FAERS Safety Report 9277620 (Version 1)
Quarter: 2013Q2

REPORT INFORMATION
  Report Type: Spontaneous
  Country: SE (occurrence: SE)
  Receive Date: 20130508
  Receipt Date: 20130508
  Transmission Date: 20140414
  Serious: No
  Sender: FDA-Public Use
  Company Number: PHHY2013SE025091

PATIENT
  Sex: Male

DRUGS (3)
  1. TASIGNA [Suspect]
  2. MARCOUMAR [Suspect]
     Dosage: 3 MG
  3. WARFARIN ORION [Concomitant]
     Dosage: 2.5 MG, UNK

REACTIONS (5)
  - Full blood count increased [Unknown]
  - Toxicity to various agents [Unknown]
  - Muscle spasms [Unknown]
  - Arthralgia [Unknown]
  - Myalgia [Unknown]
